FAERS Safety Report 13535645 (Version 2)
Quarter: 2017Q2

REPORT INFORMATION
  Report Type: Spontaneous
  Country: NO (occurrence: NO)
  Receive Date: 20170511
  Receipt Date: 20170622
  Transmission Date: 20170830
  Serious: Yes (Other)
  Sender: FDA-Public Use
  Company Number: NO-PFIZER INC-2017202371

PATIENT
  Age: 25 Year
  Sex: Male

DRUGS (1)
  1. FRAGMIN [Suspect]
     Active Substance: DALTEPARIN SODIUM
     Indication: EMBOLISM
     Dosage: UNK
     Dates: start: 201702

REACTIONS (4)
  - Blood pressure systolic increased [Recovering/Resolving]
  - Drug effect incomplete [Recovering/Resolving]
  - Pulmonary thrombosis [Recovering/Resolving]
  - Pulmonary hypertension [Recovering/Resolving]
